FAERS Safety Report 4811700-3 (Version None)
Quarter: 2005Q4

REPORT INFORMATION
  Report Type: 
  Country: None (occurrence: None)
  Receive Date: 20051025
  Receipt Date: 20051012
  Transmission Date: 20060501
  Serious: Yes (Other)
  Sender: FDA-Public Use
  Company Number: 2005129897

PATIENT
  Age: 65 Year
  Sex: Male

DRUGS (2)
  1. LIPITOR [Suspect]
     Indication: BLOOD CHOLESTEROL INCREASED
     Dosage: 10 MG (10 MG, 1 IN 1 D),
     Dates: start: 20000101, end: 20050501
  2. APO-ATENOL (ATENOLOL) [Concomitant]

REACTIONS (3)
  - DRUG INEFFECTIVE [None]
  - HEPATIC CYST [None]
  - PHARMACEUTICAL PRODUCT COMPLAINT [None]
